FAERS Safety Report 23942290 (Version 2)
Quarter: 2025Q2

REPORT INFORMATION
  Report Type: Spontaneous
  Country: CN (occurrence: CN)
  Receive Date: 20240605
  Receipt Date: 20250608
  Transmission Date: 20250717
  Serious: Yes (Life-Threatening)
  Sender: COHERUS
  Company Number: CN-SHANGHAI JUNSHI BIOSCIENCES CO., LTD.-CN2024010143

PATIENT

DRUGS (4)
  1. TORIPALIMAB [Suspect]
     Active Substance: TORIPALIMAB
     Indication: Gallbladder adenocarcinoma
     Route: 041
     Dates: start: 20240509, end: 20240509
  2. XELODA [Suspect]
     Active Substance: CAPECITABINE
     Indication: Gallbladder adenocarcinoma
     Route: 048
     Dates: start: 20240509, end: 20240522
  3. GEMCITABINE [Suspect]
     Active Substance: GEMCITABINE
     Indication: Gallbladder adenocarcinoma
     Route: 041
     Dates: start: 20240509, end: 20240509
  4. SURUFATINIB [Suspect]
     Active Substance: SURUFATINIB
     Indication: Gallbladder adenocarcinoma
     Dosage: 200 MG, QD
     Route: 048
     Dates: start: 20240509, end: 20240529

REACTIONS (3)
  - Granulocyte count decreased [Recovering/Resolving]
  - Diarrhoea [Recovering/Resolving]
  - Off label use [Unknown]

NARRATIVE: CASE EVENT DATE: 20240509
